FAERS Safety Report 10741074 (Version 2)
Quarter: 2015Q1

REPORT INFORMATION
  Report Type: Spontaneous
  Country: JP (occurrence: JP)
  Receive Date: 20150127
  Receipt Date: 20150213
  Transmission Date: 20150721
  Serious: Yes (Hospitalization)
  Sender: FDA-Public Use
  Company Number: JP-009507513-1501JPN009759

PATIENT
  Age: 84 Year
  Sex: Male
  Weight: 54 kg

DRUGS (6)
  1. STROMECTOL [Suspect]
     Active Substance: IVERMECTIN
     Dosage: 12 MG, QD, SECOND TIME
     Route: 048
     Dates: start: 20150112, end: 20150112
  2. ALLELOCK [Concomitant]
     Active Substance: OLOPATADINE HYDROCHLORIDE
     Indication: PRURITUS
     Dosage: 5 MG, BID
     Route: 048
     Dates: start: 20141226, end: 20150117
  3. EURAX [Concomitant]
     Active Substance: CROTAMITON
     Indication: ACARODERMATITIS
     Dosage: 20 G, QD
     Route: 062
     Dates: start: 20150105, end: 20150124
  4. SALICYLIC ACID. [Concomitant]
     Active Substance: SALICYLIC ACID
     Indication: SKIN EXFOLIATION
     Dosage: DAILY DOSE UNKNOWN, QD
     Route: 062
     Dates: start: 20150105, end: 20150119
  5. ALESION [Concomitant]
     Active Substance: EPINASTINE HYDROCHLORIDE
     Indication: PRURITUS
     Dosage: 10 MG, QD
     Route: 048
     Dates: start: 20141226, end: 20150117
  6. STROMECTOL [Suspect]
     Active Substance: IVERMECTIN
     Indication: ACARODERMATITIS
     Dosage: 12 MG, QD, FIRST TIME
     Route: 048
     Dates: start: 20150105, end: 20150105

REACTIONS (5)
  - Oedema peripheral [Recovering/Resolving]
  - Generalised erythema [Recovering/Resolving]
  - Pruritus [Unknown]
  - Eosinophil count increased [Recovering/Resolving]
  - Pyrexia [Recovered/Resolved]

NARRATIVE: CASE EVENT DATE: 20150117
